FAERS Safety Report 17545369 (Version 1)
Quarter: 2020Q1

REPORT INFORMATION
  Report Type: Spontaneous
  Country: JP (occurrence: JP)
  Receive Date: 20200316
  Receipt Date: 20200316
  Transmission Date: 20200409
  Serious: Yes (Other)
  Sender: FDA-Public Use
  Company Number: JP-SUN PHARMACEUTICAL INDUSTRIES LTD-2020RR-240523

PATIENT
  Age: 47 Year
  Sex: Male

DRUGS (12)
  1. PARACETAMOL [Suspect]
     Active Substance: ACETAMINOPHEN
     Indication: PYREXIA
     Dosage: UNK
     Route: 065
  2. PREDNISOLONE. [Suspect]
     Active Substance: PREDNISOLONE
     Indication: DRUG REACTION WITH EOSINOPHILIA AND SYSTEMIC SYMPTOMS
     Dosage: 20 MILLIGRAM, DAILY
     Route: 065
  3. VALSARTAN. [Suspect]
     Active Substance: VALSARTAN
     Indication: PRODUCT USED FOR UNKNOWN INDICATION
     Dosage: UNK
     Route: 065
  4. L-CARBOCISTEINE [Concomitant]
     Active Substance: CARBOCYSTEINE
     Indication: FATIGUE
  5. PARACETAMOL [Suspect]
     Active Substance: ACETAMINOPHEN
     Indication: FATIGUE
  6. METHYLPREDNISOLONE. [Suspect]
     Active Substance: METHYLPREDNISOLONE
     Indication: DRUG REACTION WITH EOSINOPHILIA AND SYSTEMIC SYMPTOMS
     Dosage: 1 GRAM, DAILY
     Route: 048
  7. L-CARBOCISTEINE [Concomitant]
     Active Substance: CARBOCYSTEINE
     Indication: PYREXIA
     Dosage: UNK
     Route: 065
  8. CLARITHROMYCIN. [Concomitant]
     Active Substance: CLARITHROMYCIN
     Indication: PYREXIA
     Dosage: UNK
     Route: 065
  9. LYSOZYME HYDROCHLORIDE [Concomitant]
     Active Substance: LYSOZYME HYDROCHLORIDE
     Indication: PYREXIA
     Dosage: UNK
     Route: 065
  10. CLARITHROMYCIN. [Concomitant]
     Active Substance: CLARITHROMYCIN
     Indication: FATIGUE
  11. LYSOZYME HYDROCHLORIDE [Concomitant]
     Active Substance: LYSOZYME HYDROCHLORIDE
     Indication: FATIGUE
  12. PREDNISOLONE. [Suspect]
     Active Substance: PREDNISOLONE
     Dosage: 1 MILLIGRAM/KILOGRAM
     Route: 048

REACTIONS (4)
  - Photosensitivity reaction [Unknown]
  - Drug reaction with eosinophilia and systemic symptoms [Unknown]
  - Herpes zoster [Unknown]
  - Therapeutic product effect incomplete [Unknown]
